FAERS Safety Report 5736636-5 (Version None)
Quarter: 2008Q2

REPORT INFORMATION
  Report Type: 
  Country: None (occurrence: None)
  Receive Date: 20080513
  Receipt Date: 20080505
  Transmission Date: 20081010
  Serious: Yes (Other)
  Sender: FDA-Public Use
  Company Number: BR-ASTRAZENECA-2008UW09281

PATIENT
  Age: 27 Year
  Sex: Male

DRUGS (4)
  1. SEROQUEL [Suspect]
     Indication: BIPOLAR DISORDER
     Dosage: 10 TABLETS
     Route: 048
     Dates: start: 20080428
  2. CHLORPROMAZINE [Suspect]
     Dosage: 10 TABLETS
     Dates: start: 20080428
  3. CLONAZEPAM [Suspect]
     Dosage: 28 TABLETS
     Dates: start: 20080428
  4. VALPROATE SODIUM [Suspect]
     Dosage: 8 TABLETS
     Dates: start: 20080428

REACTIONS (2)
  - OVERDOSE [None]
  - SOMNOLENCE [None]
